FAERS Safety Report 9916702 (Version 1)
Quarter: 2014Q1

REPORT INFORMATION
  Report Type: Spontaneous
  Country: CO (occurrence: CO)
  Receive Date: 20140221
  Receipt Date: 20140221
  Transmission Date: 20141002
  Serious: Yes (Hospitalization)
  Sender: FDA-Public Use
  Company Number: CO-PFIZER INC-2014049495

PATIENT
  Age: 13 Year
  Sex: Male
  Weight: 31 kg

DRUGS (8)
  1. GENOTROPIN [Suspect]
     Indication: GROWTH RETARDATION
     Dosage: 1 MG, 1X/DAY
     Route: 058
     Dates: start: 20140214, end: 20140217
  2. ERYTHROPOIETIN [Concomitant]
     Indication: RENAL FAILURE CHRONIC
     Dosage: 2000 IU, WEEKLY
     Route: 058
  3. AMLODIPINE [Concomitant]
     Indication: RENAL FAILURE CHRONIC
     Dosage: 5 MG, 1X/DAY
     Route: 048
  4. SODIUM BICARBONATE [Concomitant]
     Indication: RENAL FAILURE CHRONIC
     Dosage: 30 MG, 3X/DAY
     Route: 048
  5. CALCIUM CARBONATE [Concomitant]
     Indication: RENAL FAILURE CHRONIC
     Dosage: 600 MG, 3X/DAY
     Route: 048
  6. FOLIC ACID [Concomitant]
     Indication: RENAL FAILURE CHRONIC
     Dosage: 1 MG, 1X/DAY
     Route: 048
  7. FERROUS SULFATE [Concomitant]
     Indication: RENAL FAILURE CHRONIC
     Dosage: 500 MG, 1X/DAY
     Route: 048
  8. CEFALEXIN [Concomitant]
     Indication: RENAL FAILURE CHRONIC
     Dosage: 500 MG, 2X/DAY
     Route: 048

REACTIONS (1)
  - Medical device complication [Not Recovered/Not Resolved]
